FAERS Safety Report 24245150 (Version 1)
Quarter: 2024Q3

REPORT INFORMATION
  Report Type: Spontaneous
  Country: CL (occurrence: CL)
  Receive Date: 20240823
  Receipt Date: 20240823
  Transmission Date: 20241017
  Serious: Yes (Death, Other)
  Sender: ALEXION PHARMACEUTICALS
  Company Number: CL-AstraZeneca-CH-00686912A

PATIENT
  Sex: Female
  Weight: 36 kg

DRUGS (2)
  1. ULTOMIRIS [Suspect]
     Active Substance: RAVULIZUMAB-CWVZ
     Indication: Atypical haemolytic uraemic syndrome
     Dosage: 1200 MILLIGRAM, SINGLE
     Route: 041
     Dates: start: 20240807, end: 20240807
  2. ULTOMIRIS [Suspect]
     Active Substance: RAVULIZUMAB-CWVZ
     Indication: Thrombotic microangiopathy

REACTIONS (1)
  - Death [Fatal]

NARRATIVE: CASE EVENT DATE: 20240809
